FAERS Safety Report 5382994-3 (Version None)
Quarter: 2007Q3

REPORT INFORMATION
  Report Type: 
  Country: None (occurrence: None)
  Receive Date: 20070710
  Receipt Date: 20070706
  Transmission Date: 20080115
  Serious: Yes (Death)
  Sender: FDA-Public Use
  Company Number: B0478091A

PATIENT
  Age: 84 Year
  Sex: Female

DRUGS (8)
  1. PAXIL [Suspect]
     Indication: NEUROSIS
     Route: 048
     Dates: start: 20070408
  2. DOGMATYL [Suspect]
     Indication: DRUG USE FOR UNKNOWN INDICATION
     Dosage: 150MG PER DAY
     Route: 065
  3. HALCION [Concomitant]
     Dosage: .5MG PER DAY
     Route: 048
  4. MAGNESIUM OXIDE [Concomitant]
     Dosage: 1.5G PER DAY
     Route: 048
  5. CONIEL [Concomitant]
     Dosage: 4MG PER DAY
     Route: 048
  6. BASEN [Concomitant]
     Dosage: .2MG PER DAY
     Route: 048
  7. TAKEPRON [Concomitant]
     Dosage: 30MG PER DAY
     Route: 065
  8. LAC B [Concomitant]
     Dosage: 1.5G PER DAY
     Route: 048

REACTIONS (1)
  - COMPLETED SUICIDE [None]
